FAERS Safety Report 5205213-7 (Version None)
Quarter: 2007Q1

REPORT INFORMATION
  Report Type: 
  Country: None (occurrence: None)
  Receive Date: 20070110
  Receipt Date: 20070103
  Transmission Date: 20070707
  Serious: Yes (Other)
  Sender: FDA-Public Use
  Company Number: DE-PFIZER INC-2006151982

PATIENT
  Sex: Male
  Weight: 91 kg

DRUGS (6)
  1. VIAGRA [Suspect]
     Indication: PULMONARY HYPERTENSION
     Route: 048
  2. CLOPIDOGREL [Concomitant]
     Route: 048
  3. SIMVASTATIN [Concomitant]
     Route: 048
  4. ASPIRIN [Concomitant]
     Route: 048
     Dates: start: 20060401
  5. ACC [Concomitant]
     Route: 048
     Dates: start: 20060505
  6. ISCOVER [Concomitant]

REACTIONS (3)
  - BLOOD ALKALINE PHOSPHATASE INCREASED [None]
  - BLOOD BILIRUBIN INCREASED [None]
  - GAMMA-GLUTAMYLTRANSFERASE INCREASED [None]
